FAERS Safety Report 8572121-3 (Version None)
Quarter: 2012Q3

REPORT INFORMATION
  Report Type: 
  Country: None (occurrence: None)
  Receive Date: 20120724
  Receipt Date: 20120709
  Transmission Date: 20120928
  Serious: Yes (Hospitalization)
  Sender: FDA-Public Use
  Company Number: TPA2012A04611

PATIENT
  Age: 81 Year
  Sex: Male

DRUGS (4)
  1. AMLODIPINE BESYLATE [Suspect]
     Indication: HYPERTENSION
     Dosage: 25 MG PER ORAL
     Route: 048
     Dates: start: 20110101
  2. PRAVASTATIN [Suspect]
     Indication: HYPERLIPIDAEMIA
     Dosage: 10 MG PER ORAL
     Route: 048
     Dates: start: 20110101
  3. FEBURIC (FEBUXOSTAT) [Suspect]
     Indication: HYPERURICAEMIA
     Dosage: 20 MG (20 MG, 1 IN 1 D) PER ORAL
     Route: 048
     Dates: start: 20120612, end: 20120622
  4. TENORMIN [Suspect]
     Indication: HYPERTENSION
     Dosage: 25 MG PER ORAL
     Route: 048
     Dates: start: 20110101

REACTIONS (1)
  - GASTRIC ULCER HAEMORRHAGE [None]
